FAERS Safety Report 5811820-0 (Version None)
Quarter: 2008Q3

REPORT INFORMATION
  Report Type: 
  Country: None (occurrence: None)
  Receive Date: 20080715
  Receipt Date: 20080715
  Transmission Date: 20090109
  Serious: Yes (Hospitalization)
  Sender: FDA-Public Use
  Company Number: None

PATIENT
  Age: 84 Year
  Sex: Female
  Weight: 107.0489 kg

DRUGS (1)
  1. CIPRO [Suspect]
     Indication: PNEUMONIA
     Dosage: 500 MG Q12 PO
     Route: 048
     Dates: start: 20080712, end: 20080714

REACTIONS (2)
  - DYSPNOEA [None]
  - RASH GENERALISED [None]
